FAERS Safety Report 14639419 (Version 1)
Quarter: 2018Q1

REPORT INFORMATION
  Report Type: Spontaneous
  Country: FR (occurrence: FR)
  Receive Date: 20180315
  Receipt Date: 20180315
  Transmission Date: 20180509
  Serious: Yes (Other)
  Sender: FDA-Public Use
  Company Number: FR-MERCK KGAA-2043780

PATIENT
  Age: 61 Year
  Sex: Female

DRUGS (7)
  1. NOVOTHYROX [Suspect]
     Active Substance: LEVOTHYROXINE SODIUM
     Indication: HYPOTHYROIDISM
     Route: 048
     Dates: end: 20171106
  2. LEVOTHYROX 50 NF [Suspect]
     Active Substance: LEVOTHYROXINE
     Route: 048
     Dates: start: 201703, end: 201710
  3. CITALOPRAM [Concomitant]
     Active Substance: CITALOPRAM HYDROBROMIDE
     Route: 048
  4. BRILIQUE [Concomitant]
     Active Substance: TICAGRELOR
     Route: 048
  5. KARDEGIC [Concomitant]
     Active Substance: ASPIRIN DL-LYSINE
  6. PRAZEPAM [Concomitant]
     Active Substance: PRAZEPAM
     Route: 048
  7. ATORVASTATINE [Concomitant]
     Active Substance: ATORVASTATIN
     Route: 048

REACTIONS (7)
  - Anxiety [Not Recovered/Not Resolved]
  - Myalgia [Not Recovered/Not Resolved]
  - Respiration abnormal [Not Recovered/Not Resolved]
  - Arthralgia [Not Recovered/Not Resolved]
  - Blood thyroid stimulating hormone normal [Recovered/Resolved]
  - Palpitations [Not Recovered/Not Resolved]
  - Insomnia [Not Recovered/Not Resolved]

NARRATIVE: CASE EVENT DATE: 201707
